FAERS Safety Report 8216980-2 (Version None)
Quarter: 2012Q1

REPORT INFORMATION
  Report Type: 
  Country: None (occurrence: None)
  Receive Date: 20120319
  Receipt Date: 20120309
  Transmission Date: 20120608
  Serious: Yes (Other)
  Sender: FDA-Public Use
  Company Number: FR-BIOGENIDEC-2012BI008635

PATIENT
  Age: 42 Year
  Sex: Male

DRUGS (12)
  1. TYSABRI [Suspect]
     Indication: MULTIPLE SCLEROSIS
     Route: 042
     Dates: start: 20080101, end: 20101104
  2. PRAZEPAM [Concomitant]
     Dates: start: 20060101
  3. ATARAX [Concomitant]
     Dates: start: 20060101
  4. AMITRIPTYLINE HCL [Concomitant]
     Route: 048
     Dates: start: 20060101
  5. ZOLPIDEM [Concomitant]
     Dates: start: 20060101
  6. TYSABRI [Suspect]
     Route: 042
     Dates: start: 20111001, end: 20120201
  7. LUDIOMIL [Concomitant]
     Dates: start: 20060101
  8. TYSABRI [Suspect]
     Route: 042
     Dates: start: 20110705, end: 20110705
  9. ACETAMINOPHEN [Concomitant]
     Dates: start: 20060101
  10. EFFEXOR XR [Concomitant]
     Dates: start: 20060101
  11. TAMSULOSIN HCL [Concomitant]
     Dates: start: 20060101
  12. ISIMIG [Concomitant]
     Dates: start: 20060101

REACTIONS (1)
  - MELANOCYTIC NAEVUS [None]
